FAERS Safety Report 4851680-8 (Version None)
Quarter: 2005Q4

REPORT INFORMATION
  Report Type: 
  Country: None (occurrence: None)
  Receive Date: 20051209
  Receipt Date: 20051209
  Transmission Date: 20060501
  Serious: Yes (Life-Threatening, Other)
  Sender: FDA-Public Use
  Company Number: None

PATIENT
  Age: 38 Year
  Sex: Female
  Weight: 56.6996 kg

DRUGS (2)
  1. PROTOPIC [Suspect]
     Indication: VITILIGO
     Dosage: 60 G TUBE APPLY EVERYDAY TOP
     Route: 061
     Dates: start: 20021028, end: 20031111
  2. ELIDEL [Suspect]
     Indication: VITILIGO
     Dosage: 100 G TUBE APPLY AFFECTED ARE TOP
     Route: 061
     Dates: start: 20021028, end: 20031111

REACTIONS (5)
  - ALOPECIA [None]
  - APPLICATION SITE REACTION [None]
  - BREAST CANCER STAGE II [None]
  - CHEMOTHERAPY [None]
  - FEAR [None]
